FAERS Safety Report 8450861-4 (Version None)
Quarter: 2012Q2

REPORT INFORMATION
  Report Type: 
  Country: None (occurrence: None)
  Receive Date: 20120620
  Receipt Date: 20120614
  Transmission Date: 20120825
  Serious: Yes (Other)
  Sender: FDA-Public Use
  Company Number: GB-PFIZER INC-2012143161

PATIENT
  Age: 33 Year
  Sex: Male

DRUGS (3)
  1. MST CONTINUS ^ASTA MEDICA^ [Concomitant]
  2. LYRICA [Suspect]
     Route: 048
     Dates: start: 20120424, end: 20120524
  3. CREON [Concomitant]

REACTIONS (2)
  - COLITIS ISCHAEMIC [None]
  - DIARRHOEA HAEMORRHAGIC [None]
